FAERS Safety Report 6491519-0 (Version None)
Quarter: 2009Q4

REPORT INFORMATION
  Report Type: 
  Country: None (occurrence: None)
  Receive Date: 20091211
  Receipt Date: 20091204
  Transmission Date: 20100525
  Serious: Yes (Death, Hospitalization, Disabling, Other)
  Sender: FDA-Public Use
  Company Number: FR-ABBOTT-04P-056-0280541-00

PATIENT
  Sex: Male
  Weight: 103 kg

DRUGS (14)
  1. HUMIRA [Suspect]
     Indication: RHEUMATOID ARTHRITIS
     Route: 058
     Dates: start: 20040315, end: 20040929
  2. NOVATREX [Concomitant]
     Indication: RHEUMATOID ARTHRITIS
     Dosage: 12.5MG
     Dates: start: 20030930, end: 20041014
  3. PREDNISONE [Concomitant]
     Indication: RHEUMATOID ARTHRITIS
     Dates: start: 20031201, end: 20041020
  4. PREDNISONE [Concomitant]
     Indication: ANAEMIA
  5. ETRETINATE [Concomitant]
     Indication: RHEUMATOID ARTHRITIS
     Dates: start: 20030101, end: 20050117
  6. VITAMIN D3 [Concomitant]
     Indication: RHEUMATOID ARTHRITIS
     Dates: start: 20030101, end: 20050117
  7. ZESTRIL [Concomitant]
     Indication: HYPERTENSION
     Dates: start: 19770101, end: 20050117
  8. LASILIX [Concomitant]
     Indication: HYPERTENSION
     Dates: start: 19770101, end: 20041006
  9. ZOCOR [Concomitant]
     Indication: HYPERCHOLESTEROLAEMIA
     Dates: start: 19780101, end: 20050117
  10. OMEPRAZOLE [Concomitant]
     Indication: GASTRITIS
     Dates: end: 20050117
  11. TOPALGIC [Concomitant]
     Indication: PAIN
     Dates: start: 20010101, end: 20050117
  12. SPECIAFOLDINE [Concomitant]
     Indication: VITAMIN SUPPLEMENTATION
     Dates: start: 20030106, end: 20050117
  13. LACRY FLUID [Concomitant]
     Indication: DRY EYE
     Dates: end: 20050117
  14. HUMIRA [Concomitant]
     Indication: RHEUMATOID ARTHRITIS
     Route: 058
     Dates: start: 20031002

REACTIONS (1)
  - MYELODYSPLASTIC SYNDROME [None]
